FAERS Safety Report 7308032-0 (Version None)
Quarter: 2011Q1

REPORT INFORMATION
  Report Type: 
  Country: None (occurrence: None)
  Receive Date: 20110223
  Receipt Date: 20100909
  Transmission Date: 20110831
  Serious: Yes (Hospitalization, Disabling, Other)
  Sender: FDA-Public Use
  Company Number: US-BAYER-201029465NA

PATIENT
  Sex: Female
  Weight: 86 kg

DRUGS (17)
  1. HYDROCODONE/GUAIFENESIN [Concomitant]
  2. PRILOSEC [Concomitant]
  3. YAZ [Suspect]
     Indication: CONTRACEPTION
     Dosage: UNK UNK, QD
     Route: 048
     Dates: start: 20070901, end: 20071227
  4. YAZ [Suspect]
     Indication: MENSTRUATION IRREGULAR
  5. MOTRIN [Concomitant]
  6. BACTRIM DS [Concomitant]
     Indication: URINARY TRACT INFECTION
  7. STRATTERA [Concomitant]
     Dosage: 60 MG, QD
     Dates: start: 20061001
  8. NORCO [Concomitant]
  9. IBUPROFEN [Concomitant]
     Indication: INFLAMMATION
  10. BACTRIM [Concomitant]
  11. SULFAMETHOXAZOLE AND TRIMETHOPRIM [Concomitant]
     Dates: start: 20070920, end: 20071226
  12. UNCODEABLE ^UNCLASSIFIABLE^ [Concomitant]
  13. FLUOXETINE [Concomitant]
     Indication: ANXIETY
  14. STRATTERA [Concomitant]
     Indication: ATTENTION DEFICIT/HYPERACTIVITY DISORDER
     Dosage: 1 TABLET
     Route: 048
     Dates: start: 20070101, end: 20071201
  15. PREDNISONE [Concomitant]
     Dates: start: 20071218, end: 20071226
  16. WARFARIN SODIUM [Concomitant]
  17. YAZ [Suspect]
     Indication: PREMENSTRUAL SYNDROME

REACTIONS (11)
  - DYSPNOEA [None]
  - CHEST PAIN [None]
  - FATIGUE [None]
  - PELVIC VENOUS THROMBOSIS [None]
  - HAEMOPTYSIS [None]
  - PULMONARY EMBOLISM [None]
  - PRODUCTIVE COUGH [None]
  - FEELING COLD [None]
  - WEIGHT INCREASED [None]
  - NAUSEA [None]
  - ABDOMINAL DISTENSION [None]
